FAERS Safety Report 7015628-2 (Version None)
Quarter: 2010Q3

REPORT INFORMATION
  Report Type: 
  Country: None (occurrence: None)
  Receive Date: 20100927
  Receipt Date: 20100923
  Transmission Date: 20110219
  Serious: Yes (Hospitalization)
  Sender: FDA-Public Use
  Company Number: IT-BRISTOL-MYERS SQUIBB COMPANY-15281991

PATIENT
  Age: 77 Year
  Sex: Male

DRUGS (8)
  1. COUMADIN [Suspect]
     Indication: ATRIAL FIBRILLATION
     Dates: start: 20090721
  2. CONGESCOR [Concomitant]
     Dosage: COATED TABS
     Route: 048
  3. ASPIRIN [Concomitant]
     Dosage: GASTRORESISTANT ORAL TABS
     Route: 048
  4. TRIATEC [Concomitant]
     Dosage: TABS
     Route: 048
  5. CATAPRESAN [Concomitant]
     Dosage: TABS
     Route: 048
  6. LASIX [Concomitant]
     Dosage: TABS
     Route: 048
  7. PEPTAZOL [Concomitant]
     Dosage: GASTRORESISTANT TABS
     Route: 048
  8. KEPPRA [Concomitant]
     Dosage: COATED TABS
     Route: 048

REACTIONS (1)
  - EMBOLIC STROKE [None]
